FAERS Safety Report 8167217-4 (Version None)
Quarter: 2012Q1

REPORT INFORMATION
  Report Type: 
  Country: None (occurrence: None)
  Receive Date: 20120227
  Receipt Date: 20120221
  Transmission Date: 20120608
  Serious: Yes (Hospitalization)
  Sender: FDA-Public Use
  Company Number: JP-JNJFOC-20120210099

PATIENT
  Age: 76 Year
  Sex: Male

DRUGS (5)
  1. UNASYN [Concomitant]
     Indication: PNEUMONIA ASPIRATION
     Route: 041
     Dates: start: 20120201, end: 20120201
  2. DORIPENEM MONOHYDRATE [Suspect]
     Indication: PNEUMONIA ASPIRATION
     Route: 041
     Dates: start: 20120101, end: 20120101
  3. DORIPENEM MONOHYDRATE [Suspect]
     Route: 041
     Dates: start: 20120201, end: 20120201
  4. TARGOCID [Suspect]
     Indication: PNEUMONIA ASPIRATION
     Route: 041
     Dates: start: 20120101, end: 20120201
  5. ZOSYN [Concomitant]
     Indication: PNEUMONIA ASPIRATION
     Route: 041
     Dates: start: 20120101, end: 20120201

REACTIONS (1)
  - PNEUMONIA [None]
